FAERS Safety Report 16252293 (Version 4)
Quarter: 2020Q4

REPORT INFORMATION
  Report Type: Spontaneous
  Country: RS (occurrence: RS)
  Receive Date: 20190429
  Receipt Date: 20201223
  Transmission Date: 20210113
  Serious: Yes (Other)
  Sender: FDA-Public Use
  Company Number: RS-JNJFOC-20190430330

PATIENT
  Age: 70 Year
  Sex: Female

DRUGS (6)
  1. STELARA [Suspect]
     Active Substance: USTEKINUMAB
     Route: 058
     Dates: start: 20150721, end: 2018
  2. STELARA [Suspect]
     Active Substance: USTEKINUMAB
     Route: 058
     Dates: start: 20110512
  3. STELARA [Suspect]
     Active Substance: USTEKINUMAB
     Route: 058
     Dates: start: 2019
  4. STELARA [Suspect]
     Active Substance: USTEKINUMAB
     Route: 058
     Dates: start: 20110816
  5. STELARA [Suspect]
     Active Substance: USTEKINUMAB
     Indication: PSORIASIS
     Route: 058
     Dates: start: 20101201
  6. STELARA [Suspect]
     Active Substance: USTEKINUMAB
     Indication: PSORIATIC ARTHROPATHY
     Route: 058
     Dates: start: 20110208

REACTIONS (10)
  - Borrelia infection [Unknown]
  - Osteoporosis [Unknown]
  - Facial paresis [Unknown]
  - Pruritus [Unknown]
  - Uterine prolapse [Unknown]
  - Psoriatic arthropathy [Not Recovered/Not Resolved]
  - Lumbosacral radiculopathy [Unknown]
  - Metrorrhagia [Unknown]
  - Cerebrovascular disorder [Unknown]
  - Headache [Unknown]

NARRATIVE: CASE EVENT DATE: 201404
